FAERS Safety Report 7782830-1 (Version None)
Quarter: 2011Q3

REPORT INFORMATION
  Report Type: 
  Country: None (occurrence: None)
  Receive Date: 20110928
  Receipt Date: 20110921
  Transmission Date: 20111222
  Serious: Yes (Hospitalization, Disabling)
  Sender: FDA-Public Use
  Company Number: FR-B.I. PHARMACEUTICALS,INC./RIDGEFIELD-2011-FF-00519FF

PATIENT
  Sex: Female

DRUGS (12)
  1. ACETAMINOPHEN [Concomitant]
     Indication: OSTEOARTHRITIS
  2. ZOPICLONE [Concomitant]
  3. SPIRIVA [Suspect]
     Indication: ASTHMA
  4. ESCITALOPRAM OXALATE [Concomitant]
  5. SPIRIVA [Suspect]
     Indication: CHRONIC OBSTRUCTIVE PULMONARY DISEASE
     Dosage: 18 MCG
     Route: 055
     Dates: start: 20090512, end: 20110523
  6. ACTONEL [Suspect]
     Indication: POLYMYALGIA RHEUMATICA
     Dates: start: 20100301, end: 20110101
  7. EUPRESSYL [Concomitant]
  8. ESIDRIX [Concomitant]
  9. ARNICA [Concomitant]
  10. SERETIDE [Concomitant]
     Dates: end: 20110523
  11. AMINOPHYLLINE [Concomitant]
  12. FOSINOPRIL SODIUM [Concomitant]

REACTIONS (18)
  - JOINT STIFFNESS [None]
  - HAND FRACTURE [None]
  - PHOTOPSIA [None]
  - CONSTIPATION [None]
  - FATIGUE [None]
  - FUNGAL INFECTION [None]
  - TOOTH DISORDER [None]
  - DENTAL CARIES [None]
  - DYSPNOEA [None]
  - DYSPHAGIA [None]
  - SUFFOCATION FEELING [None]
  - ARTHRALGIA [None]
  - GENERAL PHYSICAL CONDITION ABNORMAL [None]
  - WRIST FRACTURE [None]
  - DRY MOUTH [None]
  - STOMATITIS [None]
  - NASAL CONGESTION [None]
  - DYSPHONIA [None]
